FAERS Safety Report 15263109 (Version 2)
Quarter: 2019Q1

REPORT INFORMATION
  Report Type: Report from Study
  Country: None (occurrence: US)
  Receive Date: 20180810
  Receipt Date: 20190329
  Transmission Date: 20190417
  Serious: Yes (Hospitalization, Other)
  Sender: FDA-Public Use
  Company Number: US-ABBVIE-18K-163-2441899-00

PATIENT
  Age: 43 Year
  Sex: Male

DRUGS (1)
  1. HUMIRA [Suspect]
     Active Substance: ADALIMUMAB
     Indication: UVEITIS
     Route: 058

REACTIONS (5)
  - Visual impairment [Unknown]
  - Kidney infection [Unknown]
  - Blindness unilateral [Unknown]
  - Glaucoma [Unknown]
  - Eye inflammation [Unknown]

NARRATIVE: CASE EVENT DATE: 201812
